FAERS Safety Report 25648405 (Version 1)
Quarter: 2025Q3

REPORT INFORMATION
  Report Type: Spontaneous
  Country: US (occurrence: US)
  Receive Date: 20250806
  Receipt Date: 20250806
  Transmission Date: 20251021
  Serious: No
  Sender: ROCHE
  Company Number: US-ROCHE-10000354051

PATIENT
  Sex: Female

DRUGS (1)
  1. ACTEMRA ACTPEN [Suspect]
     Active Substance: TOCILIZUMAB
     Indication: Rheumatoid arthritis
     Dosage: STRENGTH: 162MG/0.9M
     Route: 058
     Dates: start: 202401

REACTIONS (6)
  - Joint swelling [Unknown]
  - Pain [Unknown]
  - Condition aggravated [Recovering/Resolving]
  - Joint range of motion decreased [Unknown]
  - Arthralgia [Unknown]
  - Ill-defined disorder [Unknown]
